FAERS Safety Report 8945946 (Version 1)
Quarter: 2012Q4

REPORT INFORMATION
  Report Type: 
  Country: CO (occurrence: CO)
  Receive Date: 20121205
  Receipt Date: 20121205
  Transmission Date: 20130627
  Serious: Yes (Other)
  Sender: FDA-Public Use
  Company Number: CO-MYLANLABS-2012S1024546

PATIENT
  Age: 32 Year
  Sex: Female

DRUGS (11)
  1. VALPROIC ACID [Suspect]
     Indication: CONVULSION
     Dosage: 1500mg bolus
     Route: 065
  2. VALPROIC ACID [Interacting]
     Indication: STATUS EPILEPTICUS
     Dosage: 1500mg bolus
     Route: 065
  3. VALPROIC ACID [Interacting]
     Indication: CONVULSION
     Route: 065
  4. VALPROIC ACID [Interacting]
     Indication: STATUS EPILEPTICUS
     Route: 065
  5. PHENOBARBITAL [Interacting]
     Indication: STATUS EPILEPTICUS
     Dosage: 1g bolus dose
     Route: 065
  6. PHENOBARBITAL [Interacting]
     Indication: STATUS EPILEPTICUS
     Dosage: 200 mg/day
     Route: 065
  7. TOPIRAMATE [Interacting]
     Indication: STATUS EPILEPTICUS
     Route: 065
  8. MIDAZOLAM [Concomitant]
     Indication: CONVULSION
     Route: 065
  9. CARBAMAZEPINE [Concomitant]
     Indication: EPILEPSY
     Route: 065
  10. LEVETIRACETAM [Concomitant]
     Indication: EPILEPSY
     Route: 065
  11. GABAPENTIN [Concomitant]
     Indication: EPILEPSY
     Route: 065

REACTIONS (2)
  - Hyperammonaemic encephalopathy [Recovering/Resolving]
  - Drug interaction [Recovered/Resolved]
